FAERS Safety Report 19943829 (Version 1)
Quarter: 2021Q4

REPORT INFORMATION
  Report Type: Spontaneous
  Country: US (occurrence: US)
  Receive Date: 20211009
  Receipt Date: 20211009
  Transmission Date: 20220303
  Serious: No
  Sender: FDA-Public Use
  Company Number: None

PATIENT
  Age: 43 Year
  Sex: Female

DRUGS (1)
  1. HUMIRA [Suspect]
     Active Substance: ADALIMUMAB
     Indication: Rheumatoid arthritis

REACTIONS (5)
  - Incorrect dose administered [None]
  - Device malfunction [None]
  - Device issue [None]
  - Condition aggravated [None]
  - Anxiety [None]

NARRATIVE: CASE EVENT DATE: 20211009
